FAERS Safety Report 20573316 (Version 1)
Quarter: 2022Q1

REPORT INFORMATION
  Report Type: Spontaneous
  Country: IT (occurrence: IT)
  Receive Date: 20220309
  Receipt Date: 20220309
  Transmission Date: 20220424
  Serious: Yes (Other)
  Sender: FDA-Public Use
  Company Number: IT-ROCHE-3004670

PATIENT
  Age: 80 Year
  Sex: Female

DRUGS (8)
  1. OXALIPLATIN [Suspect]
     Active Substance: OXALIPLATIN
     Indication: Metastases to liver
     Dosage: 11 CYCLES
     Route: 065
     Dates: start: 201902, end: 201908
  2. OXALIPLATIN [Suspect]
     Active Substance: OXALIPLATIN
     Indication: Intestinal metastasis
  3. FLUOROURACIL [Suspect]
     Active Substance: FLUOROURACIL
     Indication: Metastases to liver
     Dosage: 11 CYCLES
     Route: 065
     Dates: start: 201902, end: 201908
  4. FLUOROURACIL [Suspect]
     Active Substance: FLUOROURACIL
     Indication: Intestinal metastasis
  5. LEUCOVORIN [Suspect]
     Active Substance: LEUCOVORIN
     Indication: Intestinal metastasis
     Dosage: 11 CYCLES
     Route: 065
     Dates: start: 201902, end: 201908
  6. LEUCOVORIN [Suspect]
     Active Substance: LEUCOVORIN
     Indication: Metastases to liver
  7. BEVACIZUMAB [Suspect]
     Active Substance: BEVACIZUMAB
     Indication: Intestinal metastasis
     Dosage: UNK
     Route: 065
     Dates: start: 201902, end: 201912
  8. BEVACIZUMAB [Suspect]
     Active Substance: BEVACIZUMAB
     Indication: Metastases to liver

REACTIONS (4)
  - Neuropathy peripheral [Unknown]
  - Disease progression [Unknown]
  - Fatigue [Unknown]
  - Drug ineffective [Unknown]
